FAERS Safety Report 5876919-1 (Version None)
Quarter: 2008Q3

REPORT INFORMATION
  Report Type: 
  Country: None (occurrence: None)
  Receive Date: 20080908
  Receipt Date: 20080821
  Transmission Date: 20090109
  Serious: No
  Sender: FDA-Public Use
  Company Number: 2008US001934

PATIENT
  Age: 64 Year
  Sex: Male

DRUGS (1)
  1. LEXISCAN [Suspect]
     Indication: POSITRON EMISSION TOMOGRAM
     Dosage: UNK, UNK, IV NOS
     Route: 042
     Dates: start: 20080723, end: 20080723

REACTIONS (5)
  - CHEST DISCOMFORT [None]
  - HYPOTENSION [None]
  - LOSS OF CONSCIOUSNESS [None]
  - OFF LABEL USE [None]
  - PARAESTHESIA [None]
